FAERS Safety Report 5396186-5 (Version None)
Quarter: 2007Q3

REPORT INFORMATION
  Report Type: 
  Country: None (occurrence: None)
  Receive Date: 20070725
  Receipt Date: 20070720
  Transmission Date: 20080115
  Serious: Yes (Other)
  Sender: FDA-Public Use
  Company Number: PHEH2007US05184

PATIENT
  Age: 22 Year
  Sex: Male
  Weight: 99.773 kg

DRUGS (4)
  1. CLOZARIL [Suspect]
     Indication: SCHIZOPHRENIA
     Dosage: 150MG QAM/150MG QPM/450MG QHS
     Route: 048
     Dates: start: 20030327
  2. TRILEPTAL [Concomitant]
     Indication: MOOD ALTERED
     Dosage: 600 MG, BID
     Route: 048
     Dates: start: 20030301
  3. CYMBALTA [Concomitant]
     Indication: DEPRESSION
     Dosage: 20 MG, QD
     Route: 048
     Dates: start: 20060406
  4. LORAZEPAM [Concomitant]
     Indication: ANXIETY
     Dosage: 0.5 MG, TID
     Route: 048

REACTIONS (5)
  - CHEST PAIN [None]
  - DYSPNOEA [None]
  - ELECTROCARDIOGRAM ABNORMAL [None]
  - FATIGUE [None]
  - SINUS TACHYCARDIA [None]
